FAERS Safety Report 24193091 (Version 2)
Quarter: 2024Q3

REPORT INFORMATION
  Report Type: Spontaneous
  Country: DE (occurrence: DE)
  Receive Date: 20240809
  Receipt Date: 20240819
  Transmission Date: 20241017
  Serious: Yes (Other)
  Sender: MERCK
  Company Number: DE-009507513-2408DEU001866

PATIENT
  Sex: Female

DRUGS (2)
  1. IVERMECTIN [Suspect]
     Active Substance: IVERMECTIN
     Indication: Nematodiasis
     Dosage: UNK
     Route: 048
     Dates: start: 2023
  2. IVERMECTIN [Suspect]
     Active Substance: IVERMECTIN
     Indication: Acarodermatitis

REACTIONS (6)
  - Neoplasm malignant [Unknown]
  - Pemphigoid [Unknown]
  - Naevus haemorrhage [Unknown]
  - Vasculitis [Unknown]
  - Lymphatic disorder [Unknown]
  - Product use issue [Unknown]

NARRATIVE: CASE EVENT DATE: 20230101
